FAERS Safety Report 24846817 (Version 2)
Quarter: 2025Q1

REPORT INFORMATION
  Report Type: Report from Study
  Country: US (occurrence: US)
  Receive Date: 20250115
  Receipt Date: 20250129
  Transmission Date: 20250409
  Serious: Yes (Other)
  Sender: ABBVIE
  Company Number: US-ABBVIE-6085747

PATIENT
  Age: 54 Year
  Sex: Male

DRUGS (1)
  1. VYALEV [Suspect]
     Active Substance: FOSCARBIDOPA\FOSLEVODOPA
     Indication: Parkinson^s disease
     Route: 058
     Dates: start: 20250108, end: 20250111

REACTIONS (10)
  - Syncope [Recovered/Resolved]
  - Fall [Recovered/Resolved]
  - Dystonia [Recovered/Resolved]
  - On and off phenomenon [Recovered/Resolved]
  - Peripheral swelling [Unknown]
  - Inflammation [Recovered/Resolved]
  - Head injury [Unknown]
  - Injury [Unknown]
  - Loss of consciousness [Unknown]
  - Intentional product misuse [Recovered/Resolved]

NARRATIVE: CASE EVENT DATE: 20250101
